FAERS Safety Report 5488158-7 (Version None)
Quarter: 2007Q4

REPORT INFORMATION
  Report Type: 
  Country: None (occurrence: None)
  Receive Date: 20071001
  Receipt Date: 20070628
  Transmission Date: 20080405
  Serious: Yes (Hospitalization)
  Sender: FDA-Public Use
  Company Number: 2007070016

PATIENT
  Age: 6 Year
  Sex: Male

DRUGS (2)
  1. FELBATOL [Suspect]
     Indication: ILL-DEFINED DISORDER
     Dosage: 1200 MG (1200 MG, 1 IN 1 D), PO;  WINTER 2006
     Route: 048
     Dates: end: 20060101
  2. DEPAKOTE [Concomitant]

REACTIONS (1)
  - HYPONATRAEMIA [None]
